FAERS Safety Report 12433989 (Version 2)
Quarter: 2016Q3

REPORT INFORMATION
  Report Type: Spontaneous
  Country: US (occurrence: US)
  Receive Date: 20160603
  Receipt Date: 20160707
  Transmission Date: 20161109
  Serious: Yes (Other)
  Sender: FDA-Public Use
  Company Number: US-TEVA-664985USA

PATIENT
  Age: 33 Year
  Sex: Female

DRUGS (8)
  1. TEMAZEPAM. [Interacting]
     Active Substance: TEMAZEPAM
     Indication: ANXIETY
  2. SERTRALINE [Interacting]
     Active Substance: SERTRALINE HYDROCHLORIDE
     Indication: ANXIETY
  3. SERTRALINE [Interacting]
     Active Substance: SERTRALINE HYDROCHLORIDE
     Indication: DEPRESSION
  4. VENLAFAXINE [Interacting]
     Active Substance: VENLAFAXINE HYDROCHLORIDE
     Dosage: 2 TO 4 TIMES THE RECOMMENDED STARTING DOSE
  5. VENLAFAXINE [Suspect]
     Active Substance: VENLAFAXINE HYDROCHLORIDE
  6. VENLAFAXINE [Interacting]
     Active Substance: VENLAFAXINE HYDROCHLORIDE
     Dosage: SHE RESUMED HER PRESCRIBED DOSAGE
  7. TEMAZEPAM. [Interacting]
     Active Substance: TEMAZEPAM
     Indication: DEPRESSION
  8. QUETIAPINE FUMARATE. [Interacting]
     Active Substance: QUETIAPINE FUMARATE
     Indication: INSOMNIA

REACTIONS (16)
  - Withdrawal syndrome [Recovered/Resolved]
  - Abnormal behaviour [Recovered/Resolved]
  - Fatigue [Recovered/Resolved]
  - Suicidal ideation [Recovered/Resolved]
  - Thinking abnormal [Recovered/Resolved]
  - Drug interaction [Recovered/Resolved]
  - Physical assault [Recovered/Resolved]
  - Toxicity to various agents [Recovered/Resolved]
  - Depressed mood [Recovered/Resolved]
  - Akathisia [Recovered/Resolved]
  - Homicidal ideation [Recovered/Resolved]
  - Suicide attempt [Recovered/Resolved]
  - Panic attack [Recovered/Resolved]
  - Homicide [Recovered/Resolved]
  - Aggression [Recovered/Resolved]
  - Mood swings [Recovered/Resolved]
